FAERS Safety Report 9418676 (Version 2)
Quarter: 2013Q3

REPORT INFORMATION
  Report Type: Spontaneous
  Country: US (occurrence: US)
  Receive Date: 20130725
  Receipt Date: 20130822
  Transmission Date: 20140515
  Serious: Yes (Hospitalization, Other)
  Sender: FDA-Public Use
  Company Number: US-AMGEN-USASP2013051652

PATIENT
  Age: 37 Year
  Sex: Male
  Weight: 108.84 kg

DRUGS (10)
  1. ENBREL [Suspect]
     Indication: PRODUCT USED FOR UNKNOWN INDICATION
     Dosage: 50 MG, 2 TIMES/WK
     Route: 058
  2. ASPIRIN [Concomitant]
     Dosage: 81 MG, UNK
  3. PLAVIX [Concomitant]
     Dosage: 75 MG, UNK
  4. DIOVAN [Concomitant]
     Dosage: 40 MG, UNK
  5. METOPROLOL [Concomitant]
     Dosage: 50 MG, UNK
  6. SIMVASTATIN [Concomitant]
     Dosage: 10 MG, UNK
  7. CLONAZEPAM [Concomitant]
     Dosage: 2 MG, UNK
  8. BUPROPION [Concomitant]
     Dosage: 100 MG, UNK
  9. MULTIVITAMINS, PLAIN [Concomitant]
     Dosage: UNK
  10. FISH OIL [Concomitant]
     Dosage: UNK

REACTIONS (4)
  - Anaemia [Recovered/Resolved]
  - Presyncope [Recovered/Resolved]
  - Coronary arterial stent insertion [Unknown]
  - Pain [Recovered/Resolved]
